FAERS Safety Report 6563716-7 (Version None)
Quarter: 2010Q1

REPORT INFORMATION
  Report Type: 
  Country: None (occurrence: None)
  Receive Date: 20100130
  Receipt Date: 20091218
  Transmission Date: 20100710
  Serious: No
  Sender: FDA-Public Use
  Company Number: US-ABBOTT-09P-163-0616300-00

PATIENT
  Sex: Female
  Weight: 85.806 kg

DRUGS (9)
  1. HUMIRA [Suspect]
     Indication: RHEUMATOID ARTHRITIS
     Route: 058
     Dates: start: 20060101, end: 20090701
  2. HUMIRA [Suspect]
     Route: 058
     Dates: start: 20090701
  3. SYNTHROID [Concomitant]
     Indication: HYPOTHYROIDISM
     Route: 048
  4. POTASSIUM [Concomitant]
     Indication: ELECTROLYTE SUBSTITUTION THERAPY
     Route: 048
  5. DYAZIDE [Concomitant]
     Indication: HYPERTENSION
     Dosage: 37.5/12.5, DAILY
     Route: 048
  6. PREDNISONE [Concomitant]
     Indication: DRUG USE FOR UNKNOWN INDICATION
     Dosage: 5MG X 1.5 TABLETS DAILY = 5MG X 1.5 TABLETS DAILY = 7.5MG
     Route: 048
  7. CALCIUM SUPPLEMENT [Concomitant]
     Indication: MINERAL SUPPLEMENTATION
     Route: 048
  8. RESTASIS [Concomitant]
     Indication: DRY EYE
     Route: 047
  9. LORTAB [Concomitant]
     Indication: INTERVERTEBRAL DISC PROTRUSION
     Route: 048

REACTIONS (1)
  - DRUG INEFFECTIVE [None]
